FAERS Safety Report 9507297 (Version 1)
Quarter: 2013Q3

REPORT INFORMATION
  Report Type: Report from Study
  Country: US (occurrence: US)
  Receive Date: 20130909
  Receipt Date: 20130909
  Transmission Date: 20140515
  Serious: Yes (Other)
  Sender: FDA-Public Use
  Company Number: US-ROCHE-1270148

PATIENT
  Sex: Female

DRUGS (3)
  1. RITUXAN [Suspect]
     Indication: RHEUMATOID ARTHRITIS
     Route: 065
     Dates: start: 201212
  2. PREDNISONE [Concomitant]
     Route: 065
  3. METHOTREXATE [Concomitant]
     Dosage: 15 MG PER WEEK
     Route: 065

REACTIONS (8)
  - Suicidal ideation [Unknown]
  - Drug effect delayed [Unknown]
  - Depression [Unknown]
  - Musculoskeletal pain [Unknown]
  - Carpal tunnel syndrome [Unknown]
  - Joint swelling [Unknown]
  - Fatigue [Unknown]
  - Constipation [Unknown]
